FAERS Safety Report 6221882-7 (Version None)
Quarter: 2009Q2

REPORT INFORMATION
  Report Type: 
  Country: None (occurrence: None)
  Receive Date: 20090609
  Receipt Date: 20090609
  Transmission Date: 20091009
  Serious: No
  Sender: FDA-Public Use
  Company Number: None

PATIENT
  Sex: Male
  Weight: 85.7298 kg

DRUGS (4)
  1. RITALIN [Suspect]
     Indication: ANTISOCIAL PERSONALITY DISORDER
     Dosage: RITALIN 20MG TID PO
     Route: 048
  2. RISPERDAL [Suspect]
     Indication: BIPOLAR DISORDER
     Dosage: RISPERDAL 1 QHS PO
     Route: 048
  3. LAMICTAL [Concomitant]
  4. ABILIFY [Concomitant]

REACTIONS (1)
  - DRUG INEFFECTIVE [None]
